FAERS Safety Report 6931071-6 (Version None)
Quarter: 2010Q3

REPORT INFORMATION
  Report Type: 
  Country: None (occurrence: None)
  Receive Date: 20100818
  Receipt Date: 20100818
  Transmission Date: 20110219
  Serious: Yes (Other)
  Sender: FDA-Public Use
  Company Number: None

PATIENT
  Sex: Male
  Weight: 89.1 kg

DRUGS (1)
  1. TAMSULOSIN HCL [Suspect]
     Indication: BENIGN PROSTATIC HYPERPLASIA
     Dosage: .8 MG EVERY NIGHT BY MOUTH
     Route: 048
     Dates: start: 20100622

REACTIONS (5)
  - CONDITION AGGRAVATED [None]
  - POLLAKIURIA [None]
  - PRODUCT SUBSTITUTION ISSUE [None]
  - URINARY INCONTINENCE [None]
  - URINE FLOW DECREASED [None]
